FAERS Safety Report 17154001 (Version 1)
Quarter: 2019Q4

REPORT INFORMATION
  Report Type: Spontaneous
  Country: TR (occurrence: TR)
  Receive Date: 20191213
  Receipt Date: 20191213
  Transmission Date: 20200122
  Serious: Yes (Hospitalization)
  Sender: FDA-Public Use
  Company Number: TR-BIOMARINAP-TR-2019-126773

PATIENT
  Age: 17 Month
  Sex: Female
  Weight: 9 kg

DRUGS (2)
  1. KUVAN [Suspect]
     Active Substance: SAPROPTERIN DIHYDROCHLORIDE
     Dosage: 1500 MILLIGRAM
     Route: 048
     Dates: start: 20191027
  2. KUVAN [Suspect]
     Active Substance: SAPROPTERIN DIHYDROCHLORIDE
     Indication: PHENYLKETONURIA
     Dosage: 100 MILLIGRAM, QD
     Route: 048
     Dates: start: 20181106

REACTIONS (2)
  - Overdose [Recovered/Resolved]
  - Amino acid level decreased [Recovered/Resolved]
